FAERS Safety Report 18579211 (Version 1)
Quarter: 2020Q4

REPORT INFORMATION
  Report Type: Spontaneous
  Country: BR (occurrence: BR)
  Receive Date: 20201204
  Receipt Date: 20201204
  Transmission Date: 20210114
  Serious: Yes (Other)
  Sender: FDA-Public Use
  Company Number: NVSC2020BR319830

PATIENT
  Sex: Female

DRUGS (1)
  1. VIGAMOX [Suspect]
     Active Substance: MOXIFLOXACIN HYDROCHLORIDE
     Indication: PRODUCT USED FOR UNKNOWN INDICATION
     Dosage: 5 ML (ONE MONTH AGO)
     Route: 065

REACTIONS (4)
  - Anxiety [Unknown]
  - Cataract [Recovering/Resolving]
  - Visual impairment [Unknown]
  - Ocular discomfort [Unknown]
